FAERS Safety Report 5810100-7 (Version None)
Quarter: 2008Q3

REPORT INFORMATION
  Report Type: 
  Country: None (occurrence: None)
  Receive Date: 20080715
  Receipt Date: 20080704
  Transmission Date: 20090109
  Serious: Yes (Hospitalization, Other)
  Sender: FDA-Public Use
  Company Number: IT-BRISTOL-MYERS SQUIBB COMPANY-13936554

PATIENT
  Age: 54 Year

DRUGS (4)
  1. CETUXIMAB [Suspect]
     Indication: COLON CANCER
     Dosage: DISCONTINUED ON 10-OCT-2007
     Route: 042
     Dates: start: 20070910, end: 20071010
  2. OXALIPLATIN [Suspect]
     Indication: COLON CANCER
     Dosage: RESTARTED ON 10-OCT-2007 AT REDUCED DOSE
     Route: 042
     Dates: start: 20070910
  3. FLUOROURACIL [Suspect]
     Indication: COLON CANCER
     Dosage: RESTARTED ON 10-OCT-2007 AT REDUCED DOSE
     Route: 042
     Dates: start: 20070910
  4. FOLINIC ACID [Suspect]
     Indication: COLON CANCER
     Dosage: RESTARTED ON 10-OCT-2007 AT PREVIOUS DOSE
     Route: 042
     Dates: start: 20070910

REACTIONS (5)
  - DIARRHOEA [None]
  - DYSPNOEA [None]
  - GASTRITIS [None]
  - HYPERCREATININAEMIA [None]
  - MUCOSAL INFLAMMATION [None]
